FAERS Safety Report 23265593 (Version 2)
Quarter: 2023Q4

REPORT INFORMATION
  Report Type: Spontaneous
  Country: HR (occurrence: HR)
  Receive Date: 20231206
  Receipt Date: 20231226
  Transmission Date: 20240109
  Serious: Yes (Hospitalization)
  Sender: FDA-Public Use
  Company Number: HR-ORGANON-O2312HRV000384

PATIENT
  Age: 14 Year
  Sex: Female

DRUGS (3)
  1. MELOXICAM [Suspect]
     Active Substance: MELOXICAM
     Dosage: 10 MILLIGRAM, 1 TIMES A DAY
     Route: 065
  2. FORMOTEROL [Concomitant]
     Active Substance: FORMOTEROL
     Dosage: UNK
  3. AZITHROMYCIN [Concomitant]
     Active Substance: AZITHROMYCIN
     Dosage: UNK

REACTIONS (1)
  - Drug ineffective [Unknown]
